FAERS Safety Report 15325761 (Version 2)
Quarter: 2018Q3

REPORT INFORMATION
  Report Type: Spontaneous
  Country: JP (occurrence: JP)
  Receive Date: 20180828
  Receipt Date: 20180920
  Transmission Date: 20181010
  Serious: Yes (Hospitalization)
  Sender: FDA-Public Use
  Company Number: JP-ASTRAZENECA-2018SF07772

PATIENT
  Age: 52 Year
  Sex: Male

DRUGS (1)
  1. IMFINZI [Suspect]
     Active Substance: DURVALUMAB
     Indication: NON-SMALL CELL LUNG CANCER
     Route: 041
     Dates: start: 20180731, end: 20180820

REACTIONS (2)
  - Small intestinal perforation [Recovering/Resolving]
  - Acute abdomen [Recovering/Resolving]

NARRATIVE: CASE EVENT DATE: 20180820
